FAERS Safety Report 5377321-1 (Version None)
Quarter: 2007Q3

REPORT INFORMATION
  Report Type: 
  Country: None (occurrence: None)
  Receive Date: 20070703
  Receipt Date: 20070621
  Transmission Date: 20080115
  Serious: Yes (Hospitalization)
  Sender: FDA-Public Use
  Company Number: CH-SANOFI-SYNTHELABO-A01200706848

PATIENT
  Age: 86 Year
  Sex: Male

DRUGS (7)
  1. NEXIUM [Concomitant]
     Indication: PROPHYLAXIS
     Route: 048
  2. LERCANIDIPINE [Concomitant]
     Indication: ANGINA PECTORIS
     Route: 048
  3. ASPIRIN [Concomitant]
     Indication: ANGINA PECTORIS
     Route: 048
     Dates: end: 20070502
  4. ASPIRIN [Concomitant]
     Route: 048
     Dates: start: 20070503, end: 20070503
  5. ATORVASTATIN CALCIUM [Interacting]
     Indication: HYPERCHOLESTEROLAEMIA
     Route: 048
  6. PLAVIX [Suspect]
     Indication: CORONARY ANGIOPLASTY
     Route: 048
     Dates: end: 20070502
  7. PLAVIX [Interacting]
     Route: 048
     Dates: start: 20070503, end: 20070503

REACTIONS (3)
  - ANGINA UNSTABLE [None]
  - DRUG INEFFECTIVE [None]
  - DRUG INTERACTION INHIBITION [None]
